FAERS Safety Report 7419863-0 (Version None)
Quarter: 2011Q2

REPORT INFORMATION
  Report Type: 
  Country: None (occurrence: None)
  Receive Date: 20110413
  Receipt Date: 20110413
  Transmission Date: 20111010
  Serious: Yes (Other)
  Sender: FDA-Public Use
  Company Number: None

PATIENT
  Age: 69 Year
  Sex: Female
  Weight: 54.4316 kg

DRUGS (2)
  1. CRESTOR [Suspect]
     Indication: BLOOD CHOLESTEROL
     Dosage: 5 MG DAILY ORAL
     Route: 048
     Dates: start: 20100301, end: 20100501
  2. CRESTOR [Suspect]
     Indication: BLOOD CHOLESTEROL
     Dosage: 5 MG DAILY ORAL
     Route: 048
     Dates: start: 20091201, end: 20100201

REACTIONS (3)
  - DIARRHOEA [None]
  - MUSCLE SPASMS [None]
  - GASTROINTESTINAL DISORDER [None]
